FAERS Safety Report 11215511 (Version 1)
Quarter: 2015Q2

REPORT INFORMATION
  Report Type: Spontaneous
  Country: US (occurrence: US)
  Receive Date: 20150624
  Receipt Date: 20150624
  Transmission Date: 20150821
  Serious: Yes (Hospitalization, Other)
  Sender: FDA-Public Use
  Company Number: US-SA-2015SA089080

PATIENT
  Age: 59 Year
  Sex: Female

DRUGS (9)
  1. PREGABALIN. [Suspect]
     Active Substance: PREGABALIN
     Indication: ARTHRITIS
     Route: 065
     Dates: end: 201406
  2. PREGABALIN. [Suspect]
     Active Substance: PREGABALIN
     Indication: ARTHRITIS
     Route: 065
  3. PREGABALIN. [Suspect]
     Active Substance: PREGABALIN
     Indication: FIBROMYALGIA
     Route: 065
     Dates: end: 201406
  4. TRAMADOL [Suspect]
     Active Substance: TRAMADOL
     Indication: FIBROMYALGIA
     Route: 065
     Dates: end: 201406
  5. TRAMADOL [Suspect]
     Active Substance: TRAMADOL
     Indication: FIBROMYALGIA
     Route: 065
  6. ALLEGRA [Suspect]
     Active Substance: FEXOFENADINE HYDROCHLORIDE
     Route: 048
  7. TRAMADOL [Suspect]
     Active Substance: TRAMADOL
     Indication: ARTHRITIS
     Route: 065
     Dates: end: 201406
  8. PREGABALIN. [Suspect]
     Active Substance: PREGABALIN
     Indication: FIBROMYALGIA
     Route: 065
  9. TRAMADOL [Suspect]
     Active Substance: TRAMADOL
     Indication: ARTHRITIS
     Route: 065

REACTIONS (5)
  - Fall [Unknown]
  - Anaphylactic shock [Unknown]
  - Balance disorder [Unknown]
  - Hip arthroplasty [Recovered/Resolved]
  - Atrial flutter [Recovered/Resolved]

NARRATIVE: CASE EVENT DATE: 20140623
